FAERS Safety Report 8507388-0 (Version None)
Quarter: 2012Q3

REPORT INFORMATION
  Report Type: 
  Country: None (occurrence: None)
  Receive Date: 20120712
  Receipt Date: 20120711
  Transmission Date: 20120928
  Serious: Yes (Hospitalization)
  Sender: FDA-Public Use
  Company Number: BR-BAYER-2012-069191

PATIENT
  Age: 54 Year
  Sex: Female
  Weight: 79.819 kg

DRUGS (2)
  1. AVELOX [Suspect]
     Indication: VARICOSE ULCERATION
     Dosage: 1 DF, QD
     Route: 048
     Dates: start: 20120704, end: 20120706
  2. MODURETIC 5-50 [Concomitant]
     Indication: POLLAKIURIA
     Dosage: 1 DF, QD
     Route: 048
     Dates: start: 20120704, end: 20120704

REACTIONS (4)
  - DRY MOUTH [None]
  - PALPITATIONS [None]
  - DIZZINESS [None]
  - MEMORY IMPAIRMENT [None]
